FAERS Safety Report 9257864 (Version 2)
Quarter: 2014Q1

REPORT INFORMATION
  Report Type: Spontaneous
  Country: US (occurrence: None)
  Receive Date: 20121212
  Receipt Date: 20130314
  Transmission Date: 20141002
  Serious: No
  Sender: FDA-Public Use
  Company Number: 1208USA010311

PATIENT
  Sex: Female

DRUGS (3)
  1. PEG-INTRON (PEGINTERFERON ALFA-2B) POWDER FOR INJECTION [Suspect]
     Indication: HEPATITIS C
     Route: 058
     Dates: start: 20111201, end: 201210
  2. REBETOL (RIBAVIRIN) [Suspect]
     Indication: HEPATITIS C
     Route: 048
     Dates: start: 20111201, end: 201210
  3. VICTRELIS [Suspect]
     Indication: HEPATITIS C
     Route: 048
     Dates: start: 20120109, end: 201210

REACTIONS (6)
  - Skin discolouration [None]
  - Alopecia [None]
  - Red blood cell count decreased [None]
  - Pain [None]
  - Hair texture abnormal [None]
  - Rash [None]
